FAERS Safety Report 11181047 (Version 1)
Quarter: 2015Q2

REPORT INFORMATION
  Report Type: Spontaneous
  Country: US (occurrence: US)
  Receive Date: 20150611
  Receipt Date: 20150611
  Transmission Date: 20150821
  Serious: Yes (Other)
  Sender: FDA-Public Use
  Company Number: US-BAYER-2015-306598

PATIENT
  Sex: Female

DRUGS (1)
  1. MIRENA [Suspect]
     Active Substance: LEVONORGESTREL
     Dosage: 20 MCG/24HR, UNK
     Route: 015

REACTIONS (5)
  - Genital haemorrhage [Not Recovered/Not Resolved]
  - Device dislocation [Not Recovered/Not Resolved]
  - Dizziness [Not Recovered/Not Resolved]
  - Injury associated with device [Not Recovered/Not Resolved]
  - Headache [Not Recovered/Not Resolved]

NARRATIVE: CASE EVENT DATE: 20150603
